FAERS Safety Report 17550807 (Version 1)
Quarter: 2020Q1

REPORT INFORMATION
  Report Type: Spontaneous
  Country: US (occurrence: US)
  Receive Date: 20200309
  Receipt Date: 20200309
  Transmission Date: 20200409
  Serious: Yes (Hospitalization)
  Sender: FDA-Public Use
  Company Number: None

PATIENT
  Age: 61 Year
  Sex: Female

DRUGS (24)
  1. GABAPENTIN. [Concomitant]
     Active Substance: GABAPENTIN
  2. APAP/CODEINE [Concomitant]
     Active Substance: ACETAMINOPHEN\CODEINE PHOSPHATE
  3. CHLORPROMAZ [Concomitant]
  4. DICLOFENAC [Concomitant]
     Active Substance: DICLOFENAC
  5. PROAIR HFA AER [Concomitant]
  6. BUSPIRONE [Concomitant]
     Active Substance: BUSPIRONE HYDROCHLORIDE
  7. LEVOTHYROXIN [Concomitant]
     Active Substance: LEVOTHYROXINE
  8. MONTELUKAST [Concomitant]
     Active Substance: MONTELUKAST SODIUM
  9. OLOPATADINE. [Concomitant]
     Active Substance: OLOPATADINE
  10. PANOPRAZOLE [Concomitant]
  11. PROCHLORPER [Concomitant]
  12. VENLAFAXINE [Concomitant]
     Active Substance: VENLAFAXINE HYDROCHLORIDE
  13. CEPHALEXIN. [Concomitant]
     Active Substance: CEPHALEXIN
  14. CLINDAMYCIN. [Concomitant]
     Active Substance: CLINDAMYCIN
  15. OXYBUTYNIN. [Concomitant]
     Active Substance: OXYBUTYNIN CHLORIDE
  16. DOXYCYCL HYC [Concomitant]
  17. OXCARBAZEPIN [Concomitant]
     Active Substance: OXCARBAZEPINE
  18. ROSUVASTATIN. [Concomitant]
     Active Substance: ROSUVASTATIN
  19. XOLAIR [Suspect]
     Active Substance: OMALIZUMAB
     Indication: IDIOPATHIC URTICARIA
     Dosage: ?          OTHER FREQUENCY:Q4WKS;?
     Route: 058
     Dates: start: 20140513
  20. ATENOLOL. [Concomitant]
     Active Substance: ATENOLOL
  21. CYCLOBENZAPR [Concomitant]
     Active Substance: CYCLOBENZAPRINE
  22. ERTHROMYCIN [Concomitant]
  23. HYDROCO/APAP [Concomitant]
     Active Substance: ACETAMINOPHEN\HYDROCODONE
  24. VALACYCLOVIR [Concomitant]
     Active Substance: VALACYCLOVIR HYDROCHLORIDE

REACTIONS (2)
  - Foot operation [None]
  - Back injury [None]

NARRATIVE: CASE EVENT DATE: 20200227
